FAERS Safety Report 24570546 (Version 1)
Quarter: 2024Q4

REPORT INFORMATION
  Report Type: Spontaneous
  Country: BR (occurrence: BR)
  Receive Date: 20241031
  Receipt Date: 20241031
  Transmission Date: 20250115
  Serious: Yes (Life-Threatening, Hospitalization, Other)
  Sender: Phathom Pharmaceuticals
  Company Number: BR-PHATHOM PHARMACEUTICALS INC.-2024PHT01152

PATIENT
  Age: 60 Year
  Sex: Male
  Weight: 70 kg

DRUGS (1)
  1. VONOPRAZAN FUMARATE [Suspect]
     Active Substance: VONOPRAZAN FUMARATE
     Indication: Gastritis
     Dosage: 10 MG, 1X/DAY
     Route: 048
     Dates: start: 20241001, end: 20241005

REACTIONS (7)
  - Near death experience [Unknown]
  - Tremor [Recovered/Resolved]
  - Dyspnoea [Recovered/Resolved]
  - Off label use [Unknown]
  - Malaise [Unknown]
  - Pain [Unknown]
  - Drug ineffective for unapproved indication [Unknown]

NARRATIVE: CASE EVENT DATE: 20241001
